FAERS Safety Report 18434297 (Version 1)
Quarter: 2020Q4

REPORT INFORMATION
  Report Type: Report from Study
  Country: CO (occurrence: CO)
  Receive Date: 20201027
  Receipt Date: 20201027
  Transmission Date: 20210114
  Serious: Yes (Other)
  Sender: FDA-Public Use
  Company Number: CO-TAKEDA-CO201933697

PATIENT

DRUGS (18)
  1. FIRAZYR [Suspect]
     Active Substance: ICATIBANT ACETATE
     Indication: HEREDITARY ANGIOEDEMA
     Dosage: 30 MG/30ML, EVERY 6 HOURS
     Route: 058
     Dates: start: 20160525
  2. FIRAZYR [Suspect]
     Active Substance: ICATIBANT ACETATE
     Dosage: 30MG/3 ML; EVERY 6 HOURS
     Route: 058
     Dates: start: 20191101
  3. FIRAZYR [Suspect]
     Active Substance: ICATIBANT ACETATE
     Dosage: 30 MG/30ML, EVERY 6 HOURS
     Route: 058
     Dates: start: 20160525
  4. FIRAZYR [Suspect]
     Active Substance: ICATIBANT ACETATE
     Dosage: 30 MILLIGRAM/3 ML, EVERY 6 HOURS, MAX 3 DOSES IN 24HOURS
     Route: 058
     Dates: start: 20200913, end: 20200914
  5. FIRAZYR [Suspect]
     Active Substance: ICATIBANT ACETATE
     Indication: HEREDITARY ANGIOEDEMA
     Dosage: 30 MG/30ML, EVERY 6 HOURS
     Route: 058
     Dates: start: 20160525
  6. FIRAZYR [Suspect]
     Active Substance: ICATIBANT ACETATE
     Dosage: 30MG/3 ML; EVERY 6 HOURS
     Route: 058
     Dates: start: 20191031
  7. FIRAZYR [Suspect]
     Active Substance: ICATIBANT ACETATE
     Dosage: 30MG/3 ML; EVERY 6 HOURS
     Route: 058
     Dates: start: 20200115
  8. FIRAZYR [Suspect]
     Active Substance: ICATIBANT ACETATE
     Dosage: 30 MILLIGRAM/3 ML, EVERY 6 HOURS, MAX 3 DOSES IN 24HOURS
     Route: 058
     Dates: start: 20200913, end: 20200914
  9. FIRAZYR [Suspect]
     Active Substance: ICATIBANT ACETATE
     Dosage: EVERY 6 HOURS
     Route: 058
     Dates: start: 20191007, end: 20191007
  10. FIRAZYR [Suspect]
     Active Substance: ICATIBANT ACETATE
     Dosage: EVERY 6 HOURS
     Route: 058
     Dates: start: 20191007, end: 20191007
  11. FIRAZYR [Suspect]
     Active Substance: ICATIBANT ACETATE
     Dosage: EVERY 6 HOURS, 30 MG/3 ML
     Route: 058
     Dates: start: 2015
  12. FIRAZYR [Suspect]
     Active Substance: ICATIBANT ACETATE
     Dosage: 30MG/3 ML; EVERY 6 HOURS
     Route: 058
     Dates: start: 20191101
  13. FIRAZYR [Suspect]
     Active Substance: ICATIBANT ACETATE
     Dosage: 30MG/3 ML; EVERY 6 HOURS
     Route: 058
     Dates: start: 20191031
  14. FIRAZYR [Suspect]
     Active Substance: ICATIBANT ACETATE
     Dosage: 30 MG/30ML, EVERY 6 HOURS
     Route: 058
     Dates: start: 20160525
  15. FIRAZYR [Suspect]
     Active Substance: ICATIBANT ACETATE
     Dosage: EVERY 6 HOURS, 30 MG/3 ML
     Route: 058
     Dates: start: 2015
  16. FIRAZYR [Suspect]
     Active Substance: ICATIBANT ACETATE
     Dosage: 30MG/3ML, AS REQ^D
     Route: 058
     Dates: start: 20191028
  17. FIRAZYR [Suspect]
     Active Substance: ICATIBANT ACETATE
     Dosage: 30MG/3ML, AS REQ^D
     Route: 058
     Dates: start: 20191028
  18. FIRAZYR [Suspect]
     Active Substance: ICATIBANT ACETATE
     Dosage: 30MG/3 ML; EVERY 6 HOURS
     Route: 058
     Dates: start: 20200115

REACTIONS (2)
  - Hereditary angioedema [Recovering/Resolving]
  - Prescription drug used without a prescription [Not Recovered/Not Resolved]

NARRATIVE: CASE EVENT DATE: 20191031
